FAERS Safety Report 21946983 (Version 1)
Quarter: 2023Q1

REPORT INFORMATION
  Report Type: Spontaneous
  Country: CN (occurrence: CN)
  Receive Date: 20230202
  Receipt Date: 20230202
  Transmission Date: 20230417
  Serious: Yes (Other)
  Sender: FDA-Public Use
  Company Number: CN-PFIZER INC-PV202300019111

PATIENT
  Age: 91 Year
  Sex: Female

DRUGS (3)
  1. NIRMATRELVIR\RITONAVIR [Suspect]
     Active Substance: NIRMATRELVIR\RITONAVIR
     Indication: COVID-19 treatment
     Dosage: 3 DF, 2X/DAY
     Route: 048
     Dates: start: 20221226, end: 20221231
  2. DEXAMETHASONE SODIUM PHOSPHATE [Suspect]
     Active Substance: DEXAMETHASONE SODIUM PHOSPHATE
     Indication: Coronavirus infection
     Dosage: 5 MG, 1X/DAY
     Route: 042
     Dates: start: 20230104, end: 20230109
  3. IBUPROFEN [Suspect]
     Active Substance: IBUPROFEN
     Indication: Coronavirus infection
     Dosage: 0.2 G, 1X/DAY
     Route: 048
     Dates: start: 20221224, end: 20221225

REACTIONS (3)
  - Pneumonitis [Unknown]
  - Condition aggravated [Unknown]
  - Hepatic function abnormal [Unknown]

NARRATIVE: CASE EVENT DATE: 20230107
